FAERS Safety Report 8616184 (Version 2)
Quarter: 2018Q4

REPORT INFORMATION
  Report Type: Other
  Country: AU (occurrence: AU)
  Receive Date: 20120530
  Receipt Date: 20181209
  Transmission Date: 20190205
  Serious: Yes (Hospitalization, Disabling)
  Sender: FDA-Public Use
  Company Number: AU-DEXPHARM-20120587

PATIENT
  Age: 32 Year
  Sex: Female

DRUGS (2)
  1. CHLORHEXIDINE [Suspect]
     Active Substance: CHLORHEXIDINE
     Indication: LABOUR PAIN
     Route: 008
     Dates: start: 20100626
  2. DEXAMETHASONE. [Concomitant]
     Active Substance: DEXAMETHASONE

REACTIONS (11)
  - Urinary retention [Unknown]
  - Constipation [Not Recovered/Not Resolved]
  - Paraparesis [Unknown]
  - Wrong product administered [Unknown]
  - Arachnoiditis [Unknown]
  - Incorrect route of product administration [Unknown]
  - Diplegia [Unknown]
  - Depression [Unknown]
  - Muscle spasms [Unknown]
  - Hydrocephalus [Unknown]
  - Exposure during pregnancy [Unknown]

NARRATIVE: CASE EVENT DATE: 20100626
